FAERS Safety Report 7811974-0 (Version None)
Quarter: 2011Q4

REPORT INFORMATION
  Report Type: 
  Country: None (occurrence: None)
  Receive Date: 20111013
  Receipt Date: 20110930
  Transmission Date: 20120403
  Serious: Yes (Hospitalization, Other)
  Sender: FDA-Public Use
  Company Number: PHHO2011FR08142

PATIENT
  Sex: Male
  Weight: 80 kg

DRUGS (13)
  1. SIMULECT [Concomitant]
     Indication: RENAL TRANSPLANT
     Dosage: 20 MG, (DAY 0)
     Route: 042
     Dates: start: 20110426, end: 20110426
  2. SIMULECT [Concomitant]
     Dosage: 20 MG, (DAY 4)
     Route: 042
     Dates: start: 20110430, end: 20110430
  3. VITAMIN B COMPLEX TAB [Concomitant]
     Dosage: UNK
     Dates: start: 20110501
  4. POLYETHYLENE GLYCOL [Concomitant]
     Dosage: UNK
     Dates: start: 20110428
  5. ZANTAC [Concomitant]
     Dosage: 150 MG
     Route: 048
     Dates: start: 20110427
  6. NEORAL [Suspect]
     Indication: RENAL TRANSPLANT
     Dosage: 150 MG
     Route: 048
     Dates: start: 20110428
  7. LASIX [Concomitant]
     Dosage: UNK
     Dates: start: 20110426
  8. MYCOPHENOLATE MOFETIL (CELLCEPT) [Suspect]
     Indication: RENAL TRANSPLANT
     Dosage: 500 MG
     Route: 048
     Dates: start: 20110427
  9. DEBRIDAT [Concomitant]
     Dosage: UNK
     Dates: start: 20110428
  10. BACTRIM [Concomitant]
     Dosage: UNK
     Dates: start: 20110427
  11. PREDNISONE [Suspect]
     Indication: RENAL TRANSPLANT
     Dosage: 10 MG
     Route: 048
     Dates: start: 20110427
  12. FUNGIZONE [Concomitant]
     Dosage: UNK
     Dates: start: 20110428
  13. IMOVANE [Concomitant]
     Dosage: UNK
     Dates: start: 20110502

REACTIONS (7)
  - ARTERITIS [None]
  - GENERAL PHYSICAL HEALTH DETERIORATION [None]
  - RENAL FAILURE ACUTE [None]
  - DISEASE PROGRESSION [None]
  - BENIGN PROSTATIC HYPERPLASIA [None]
  - KLEBSIELLA SEPSIS [None]
  - PSEUDOMONAL SEPSIS [None]
